FAERS Safety Report 8090128-X (Version None)
Quarter: 2012Q1

REPORT INFORMATION
  Report Type: 
  Country: None (occurrence: None)
  Receive Date: 20120129
  Receipt Date: 20111018
  Transmission Date: 20120608
  Serious: No
  Sender: FDA-Public Use
  Company Number: US-ABBOTT-11P-163-0866508-00

PATIENT
  Age: 53 Year
  Sex: Female

DRUGS (5)
  1. CRANBERRY [Concomitant]
     Indication: PRODUCT USED FOR UNKNOWN INDICATION
  2. SYNTHROID [Concomitant]
     Indication: PRODUCT USED FOR UNKNOWN INDICATION
  3. IBUPROFEN (ADVIL) [Concomitant]
     Indication: PRODUCT USED FOR UNKNOWN INDICATION
  4. ZESTRIL [Concomitant]
     Indication: HYPERTENSION
  5. HUMIRA [Suspect]
     Indication: PSORIATIC ARTHROPATHY

REACTIONS (6)
  - FLUSHING [None]
  - DIARRHOEA [None]
  - NASOPHARYNGITIS [None]
  - BACK PAIN [None]
  - INFLUENZA [None]
  - URINARY TRACT INFECTION [None]
